FAERS Safety Report 19746304 (Version 2)
Quarter: 2021Q3

REPORT INFORMATION
  Report Type: Report from Study
  Country: None (occurrence: US)
  Receive Date: 20210826
  Receipt Date: 20210827
  Transmission Date: 20211014
  Serious: No
  Sender: FDA-Public Use
  Company Number: US-ABBVIE-21K-163-4049096-00

PATIENT
  Age: 51 Year
  Sex: Female

DRUGS (1)
  1. HUMIRA [Suspect]
     Active Substance: ADALIMUMAB
     Indication: CROHN^S DISEASE
     Dosage: CITRATE?FREE
     Route: 058
     Dates: end: 20210802

REACTIONS (5)
  - Arthritis [Not Recovered/Not Resolved]
  - Gastric ulcer [Unknown]
  - Antibody test abnormal [Not Recovered/Not Resolved]
  - Arthralgia [Unknown]
  - Urticaria [Not Recovered/Not Resolved]

NARRATIVE: CASE EVENT DATE: 202107
